FAERS Safety Report 7602839-8 (Version None)
Quarter: 2011Q3

REPORT INFORMATION
  Report Type: 
  Country: None (occurrence: None)
  Receive Date: 20110712
  Receipt Date: 20110705
  Transmission Date: 20111222
  Serious: Yes (Hospitalization)
  Sender: FDA-Public Use
  Company Number: FR-JNJFOC-20110702044

PATIENT
  Age: 28 Year
  Sex: Male

DRUGS (16)
  1. TARGOCID [Concomitant]
     Indication: PRODUCT USED FOR UNKNOWN INDICATION
     Route: 065
  2. NORMIX [Concomitant]
     Indication: PRODUCT USED FOR UNKNOWN INDICATION
     Route: 065
  3. ACETAMINOPHEN [Concomitant]
     Route: 065
  4. DURAGESIC-100 [Concomitant]
     Route: 065
  5. CELLCEPT [Concomitant]
     Route: 065
  6. TIORFAN [Concomitant]
     Route: 065
  7. AMBISOME [Concomitant]
     Route: 065
  8. VALIUM [Concomitant]
     Route: 065
  9. MYAMBUTOL [Concomitant]
     Route: 065
  10. MEPERIDINE HCL [Concomitant]
     Route: 065
  11. TRAMADOL HCL [Concomitant]
     Route: 065
  12. SEROPRAM B [Concomitant]
     Route: 065
  13. LEVOFLOXACIN [Suspect]
     Indication: PRODUCT USED FOR UNKNOWN INDICATION
     Route: 065
     Dates: start: 20110307, end: 20110316
  14. SILDENAFIL CITRATE [Concomitant]
     Route: 065
  15. STREPTOMYCIN SULFATE [Suspect]
     Indication: PRODUCT USED FOR UNKNOWN INDICATION
     Route: 042
     Dates: start: 20110314
  16. ZITHROMAX [Concomitant]
     Indication: PRODUCT USED FOR UNKNOWN INDICATION
     Route: 065

REACTIONS (1)
  - HEARING IMPAIRED [None]
